FAERS Safety Report 22640477 (Version 1)
Quarter: 2023Q2

REPORT INFORMATION
  Report Type: Spontaneous
  Country: US (occurrence: US)
  Receive Date: 20230626
  Receipt Date: 20230626
  Transmission Date: 20230721
  Serious: No
  Sender: FDA-Public Use
  Company Number: US-TEVA-2023-US-2895877

PATIENT
  Age: 87 Year
  Sex: Male

DRUGS (1)
  1. POTASSIUM CHLORIDE [Suspect]
     Active Substance: POTASSIUM CHLORIDE
     Indication: Blood pressure measurement
     Dosage: 20 MEQ
     Route: 048
     Dates: start: 20230526, end: 2023

REACTIONS (5)
  - Rash [Unknown]
  - Insomnia [Unknown]
  - Product use complaint [Unknown]
  - Product coating issue [Unknown]
  - Product use in unapproved indication [Unknown]

NARRATIVE: CASE EVENT DATE: 20230101
